FAERS Safety Report 8539603-1 (Version None)
Quarter: 2012Q3

REPORT INFORMATION
  Report Type: 
  Country: None (occurrence: None)
  Receive Date: 20120726
  Receipt Date: 20120717
  Transmission Date: 20120928
  Serious: Yes (Hospitalization)
  Sender: FDA-Public Use
  Company Number: US-JNJFOC-20120512791

PATIENT
  Sex: Male
  Weight: 119.3 kg

DRUGS (5)
  1. SEROQUEL [Concomitant]
     Indication: SEASONAL AFFECTIVE DISORDER
     Route: 065
     Dates: start: 20110101
  2. PROPRANOLOL [Concomitant]
     Indication: ANXIETY
     Route: 065
     Dates: start: 20100101
  3. UNKNOWN MEDICATION [Suspect]
     Indication: PRODUCT USED FOR UNKNOWN INDICATION
     Route: 065
  4. INVEGA SUSTENNA [Suspect]
     Indication: SCHIZOAFFECTIVE DISORDER
     Route: 030
     Dates: start: 20120508
  5. SERTRALINE HYDROCHLORIDE [Concomitant]
     Indication: ANXIETY
     Route: 065
     Dates: start: 20100101

REACTIONS (1)
  - HYPERSENSITIVITY [None]
